FAERS Safety Report 7376934-5 (Version None)
Quarter: 2011Q1

REPORT INFORMATION
  Report Type: 
  Country: None (occurrence: None)
  Receive Date: 20110328
  Receipt Date: 20110301
  Transmission Date: 20110831
  Serious: Yes (Hospitalization)
  Sender: FDA-Public Use
  Company Number: IT-RANBAXY-2011RR-42814

PATIENT
  Age: 74 Year
  Sex: Female

DRUGS (3)
  1. CLARITHROMYCIN [Suspect]
     Indication: BRONCHITIS
     Dosage: 500 MG, BID
  2. AMITRIPTYLINE HCL [Concomitant]
  3. LORAZEPAM [Concomitant]

REACTIONS (11)
  - STATUS EPILEPTICUS [None]
  - LETHARGY [None]
  - DYSPHORIA [None]
  - AGITATION [None]
  - ABNORMAL BEHAVIOUR [None]
  - PSYCHOMOTOR RETARDATION [None]
  - CEREBRAL ATROPHY [None]
  - CENTRAL NERVOUS SYSTEM LESION [None]
  - PRESSURE OF SPEECH [None]
  - LEUKOCYTOSIS [None]
  - BLOOD CREATINE PHOSPHOKINASE INCREASED [None]
